FAERS Safety Report 9099278 (Version 2)
Quarter: 2013Q1

REPORT INFORMATION
  Report Type: Spontaneous
  Country: US (occurrence: US)
  Receive Date: 20130214
  Receipt Date: 20130307
  Transmission Date: 20140127
  Serious: No
  Sender: FDA-Public Use
  Company Number: US-TEVA-386023USA

PATIENT
  Sex: Female
  Weight: 108.96 kg

DRUGS (1)
  1. QVAR [Suspect]
     Indication: ASTHMA
     Dosage: 320 MICROGRAM DAILY;
     Route: 055
     Dates: end: 201301

REACTIONS (1)
  - Dyspnoea [Recovered/Resolved]
